FAERS Safety Report 17945219 (Version 19)
Quarter: 2022Q2

REPORT INFORMATION
  Report Type: Report from Study
  Country: NL (occurrence: NL)
  Receive Date: 20200626
  Receipt Date: 20220617
  Transmission Date: 20220721
  Serious: Yes (Other)
  Sender: FDA-Public Use
  Company Number: NL-ABBVIE-19K-114-2988642-00

PATIENT
  Age: 72 Year
  Sex: Male

DRUGS (18)
  1. CARBIDOPA\LEVODOPA [Suspect]
     Active Substance: CARBIDOPA\LEVODOPA
     Indication: Parkinson^s disease
     Dosage: MD: 18.7, CD: 5.9, ED: 4.0; 16 HOUR ADMINISTRATION;
     Route: 050
     Dates: start: 20191028, end: 20191114
  2. CARBIDOPA\LEVODOPA [Suspect]
     Active Substance: CARBIDOPA\LEVODOPA
     Dosage: MD: 18.7ML, CD: 5.3ML/H, ED: 4.0ML(REMAINED AT 16 HOURS)
     Route: 050
     Dates: start: 20200511, end: 2020
  3. CARBIDOPA\LEVODOPA [Suspect]
     Active Substance: CARBIDOPA\LEVODOPA
     Dosage: MD: 18.7, CD: 5.9, ED: 4.0; 16 HOUR ADMINISTRATION
     Route: 050
     Dates: start: 20200629, end: 2020
  4. CARBIDOPA\LEVODOPA [Suspect]
     Active Substance: CARBIDOPA\LEVODOPA
     Dosage: MD: 18.7ML, CD: 6.2ML/H, ED: 4.0ML; REMAINED AT 16 HOURS
     Route: 050
     Dates: start: 2020, end: 2020
  5. CARBIDOPA\LEVODOPA [Suspect]
     Active Substance: CARBIDOPA\LEVODOPA
     Dosage: MD: 18.7ML, CD: 5.7ML/H, ED: 4.0ML; REMAINED AT 16 HOURS
     Route: 050
     Dates: start: 20200924, end: 2020
  6. CARBIDOPA\LEVODOPA [Suspect]
     Active Substance: CARBIDOPA\LEVODOPA
     Dosage: MD: 18.7 ML; CD: 5.7 ML/H; ED: 4.0 ML
     Route: 050
     Dates: start: 20200924
  7. CARBIDOPA\LEVODOPA [Suspect]
     Active Substance: CARBIDOPA\LEVODOPA
     Dosage: CD:4.9 ML
     Route: 050
  8. CARBIDOPA\LEVODOPA [Suspect]
     Active Substance: CARBIDOPA\LEVODOPA
     Dosage: MD: 18.7 ML; CD: 5.5 ML/H; ED: 4.0 ML
     Route: 050
  9. CARBIDOPA\LEVODOPA [Suspect]
     Active Substance: CARBIDOPA\LEVODOPA
     Dosage: MD: 17.7 ML; CD: 5.5 ML/H; ED: 4.0 ML
     Route: 050
  10. CARBIDOPA\LEVODOPA [Suspect]
     Active Substance: CARBIDOPA\LEVODOPA
     Dosage: MD: 17.7 ML; CD: 5.2 ML/H; ED: 4.0 ML
     Route: 050
  11. CARBIDOPA\LEVODOPA [Suspect]
     Active Substance: CARBIDOPA\LEVODOPA
     Dosage: MD: 17.7 ML; CD:4.9 ML/H; ED: 4.0 ML
     Route: 050
  12. ROTIGOTINE [Concomitant]
     Active Substance: ROTIGOTINE
     Indication: Parkinson^s disease
     Dosage: FORM STRENGTH: 2 MG/24 HOUR, UNIT DOSE: 1 PATCH
  13. DOMPERIDONE [Concomitant]
     Active Substance: DOMPERIDONE
     Indication: Impaired gastric emptying
     Dosage: CF
  14. LAXANS [Concomitant]
     Indication: Product used for unknown indication
  15. BISACODYL [Concomitant]
     Active Substance: BISACODYL
     Indication: Abnormal faeces
     Dosage: IF NEEDED
  16. POLYETHYLENE GLYCOLS [Concomitant]
     Active Substance: POLYETHYLENE GLYCOLS
     Indication: Abnormal faeces
     Dosage: IF NEEDED
  17. RIVASTIGMINE [Concomitant]
     Active Substance: RIVASTIGMINE
     Indication: Product used for unknown indication
  18. NITROFURANTOIN [Concomitant]
     Active Substance: NITROFURANTOIN
     Indication: Urinary tract infection

REACTIONS (90)
  - Urosepsis [Not Recovered/Not Resolved]
  - Seizure [Unknown]
  - Balance disorder [Not Recovered/Not Resolved]
  - Mobility decreased [Not Recovered/Not Resolved]
  - Reduced facial expression [Recovering/Resolving]
  - Impaired gastric emptying [Recovered/Resolved]
  - Urinary tract infection [Recovered/Resolved]
  - Fluid intake reduced [Not Recovered/Not Resolved]
  - Feeding disorder [Recovering/Resolving]
  - Speech disorder [Recovered/Resolved]
  - Blood pressure abnormal [Unknown]
  - Abnormal faeces [Recovered/Resolved]
  - General physical health deterioration [Recovered/Resolved]
  - Feeling abnormal [Not Recovered/Not Resolved]
  - Decubitus ulcer [Not Recovered/Not Resolved]
  - Disturbance in attention [Not Recovered/Not Resolved]
  - Bradyphrenia [Unknown]
  - Limb injury [Not Recovered/Not Resolved]
  - Screaming [Not Recovered/Not Resolved]
  - Device expulsion [Not Recovered/Not Resolved]
  - Condition aggravated [Recovered/Resolved]
  - Musculoskeletal stiffness [Not Recovered/Not Resolved]
  - Skin striae [Not Recovered/Not Resolved]
  - Device kink [Recovered/Resolved]
  - Restlessness [Not Recovered/Not Resolved]
  - Abnormal dreams [Not Recovered/Not Resolved]
  - Mobility decreased [Not Recovered/Not Resolved]
  - Speech disorder [Not Recovered/Not Resolved]
  - Wheelchair user [Not Recovered/Not Resolved]
  - Tremor [Recovering/Resolving]
  - Gait disturbance [Not Recovered/Not Resolved]
  - Dystonia [Not Recovered/Not Resolved]
  - Muscle spasms [Not Recovered/Not Resolved]
  - Delirium [Recovered/Resolved]
  - Dermatitis [Not Recovered/Not Resolved]
  - Fear [Not Recovered/Not Resolved]
  - Fall [Not Recovered/Not Resolved]
  - Defaecation disorder [Recovered/Resolved]
  - Delusion [Not Recovered/Not Resolved]
  - Dyskinesia [Recovered/Resolved]
  - On and off phenomenon [Recovering/Resolving]
  - Nausea [Recovered/Resolved]
  - Muscle rigidity [Not Recovered/Not Resolved]
  - Bradykinesia [Not Recovered/Not Resolved]
  - Therapeutic product effect incomplete [Unknown]
  - Syncope [Not Recovered/Not Resolved]
  - Stoma site discharge [Recovered/Resolved]
  - Vomiting [Not Recovered/Not Resolved]
  - Constipation [Recovered/Resolved]
  - Hallucination [Recovered/Resolved]
  - Confusional state [Not Recovered/Not Resolved]
  - Stoma site erythema [Unknown]
  - Freezing phenomenon [Not Recovered/Not Resolved]
  - Stoma site pain [Recovered/Resolved]
  - Unevaluable event [Recovering/Resolving]
  - Dyskinesia [Recovered/Resolved]
  - Dyskinesia [Not Recovered/Not Resolved]
  - Dyskinesia [Recovered/Resolved]
  - Tongue movement disturbance [Recovered/Resolved]
  - Bowel movement irregularity [Recovered/Resolved]
  - Delirium [Not Recovered/Not Resolved]
  - Vomiting [Not Recovered/Not Resolved]
  - Loss of personal independence in daily activities [Not Recovered/Not Resolved]
  - Hypokinesia [Recovered/Resolved]
  - Drug ineffective [Unknown]
  - Adverse drug reaction [Recovering/Resolving]
  - Dysphagia [Not Recovered/Not Resolved]
  - Unevaluable event [Recovering/Resolving]
  - Unevaluable event [Not Recovered/Not Resolved]
  - Mobility decreased [Not Recovered/Not Resolved]
  - Loss of personal independence in daily activities [Not Recovered/Not Resolved]
  - Therapeutic product effect decreased [Not Recovered/Not Resolved]
  - Muscle spasms [Not Recovered/Not Resolved]
  - Cognitive disorder [Recovering/Resolving]
  - On and off phenomenon [Recovering/Resolving]
  - Tongue movement disturbance [Unknown]
  - Unevaluable event [Unknown]
  - Parkinson^s disease [Not Recovered/Not Resolved]
  - Somnolence [Not Recovered/Not Resolved]
  - Medical device site papule [Unknown]
  - Unevaluable event [Not Recovered/Not Resolved]
  - Dysphagia [Not Recovered/Not Resolved]
  - Hyperhidrosis [Not Recovered/Not Resolved]
  - Unevaluable event [Recovering/Resolving]
  - Speech disorder [Recovered/Resolved]
  - Facial spasm [Not Recovered/Not Resolved]
  - Syncope [Not Recovered/Not Resolved]
  - Stoma site discharge [Recovered/Resolved]
  - Hallucination [Not Recovered/Not Resolved]
  - Dyskinesia [Recovered/Resolved]

NARRATIVE: CASE EVENT DATE: 20191001
